FAERS Safety Report 17306894 (Version 1)
Quarter: 2020Q1

REPORT INFORMATION
  Report Type: Spontaneous
  Country: CA (occurrence: CA)
  Receive Date: 20200123
  Receipt Date: 20200123
  Transmission Date: 20200409
  Serious: Yes (Other)
  Sender: FDA-Public Use
  Company Number: CA-MACLEODS PHARMACEUTICALS US LTD-MAC2020024838

PATIENT

DRUGS (5)
  1. CLOMIPRAMINE [Interacting]
     Active Substance: CLOMIPRAMINE
     Dosage: 250 MILLIGRAM, QD
     Route: 065
     Dates: start: 19980302
  2. OLANZAPINE. [Suspect]
     Active Substance: OLANZAPINE
     Indication: SCHIZOPHRENIA
     Dosage: 20 MILLIGRAM, QD
     Route: 065
     Dates: start: 199712
  3. CLOMIPRAMINE [Interacting]
     Active Substance: CLOMIPRAMINE
     Indication: OBSESSIVE-COMPULSIVE DISORDER
     Dosage: 50 MILLIGRAM, QD
     Route: 065
  4. CLOMIPRAMINE [Interacting]
     Active Substance: CLOMIPRAMINE
     Dosage: 300 MILLIGRAM, QD
     Route: 065
  5. OLANZAPINE. [Interacting]
     Active Substance: OLANZAPINE
     Dosage: 15 MILLIGRAM, QD
     Route: 065

REACTIONS (2)
  - Drug interaction [Unknown]
  - Seizure [Recovered/Resolved]

NARRATIVE: CASE EVENT DATE: 19980320
